FAERS Safety Report 7709717-4 (Version None)
Quarter: 2011Q3

REPORT INFORMATION
  Report Type: 
  Country: None (occurrence: None)
  Receive Date: 20110825
  Receipt Date: 20110318
  Transmission Date: 20111222
  Serious: Yes (Hospitalization)
  Sender: FDA-Public Use
  Company Number: FR-GLAXOSMITHKLINE-B0741862A

PATIENT
  Sex: Female

DRUGS (2)
  1. IBUPROFEN [Suspect]
     Indication: PAIN
     Route: 048
     Dates: start: 20110301, end: 20110301
  2. SORIATANE [Suspect]
     Indication: PSORIASIS
     Route: 048
     Dates: start: 20110715, end: 20110727

REACTIONS (3)
  - DRUG INEFFECTIVE [None]
  - PUSTULAR PSORIASIS [None]
  - PSORIASIS [None]
